FAERS Safety Report 12438622 (Version 1)
Quarter: 2016Q2

REPORT INFORMATION
  Report Type: Spontaneous
  Country: US (occurrence: US)
  Receive Date: 20160606
  Receipt Date: 20160606
  Transmission Date: 20160815
  Serious: Yes (Other)
  Sender: FDA-Public Use
  Company Number: US-SMITH AND NEPHEW, INC-2016SMT00488

PATIENT
  Sex: Female

DRUGS (2)
  1. REGRANEX [Suspect]
     Active Substance: BECAPLERMIN
     Indication: WOUND
  2. UNSPECIFIED GEL [Suspect]
     Active Substance: UNSPECIFIED INGREDIENT
     Indication: WOUND

REACTIONS (3)
  - Drug ineffective [None]
  - Skin graft [Recovering/Resolving]
  - Drug ineffective for unapproved indication [Recovering/Resolving]
